FAERS Safety Report 19014399 (Version 3)
Quarter: 2021Q2

REPORT INFORMATION
  Report Type: Report from Study
  Country: CO (occurrence: CO)
  Receive Date: 20210316
  Receipt Date: 20210510
  Transmission Date: 20210717
  Serious: Yes (Other)
  Sender: FDA-Public Use
  Company Number: CO-TAKEDA-2021TUS015620

PATIENT
  Age: 4 Year
  Sex: Male
  Weight: 17.8 kg

DRUGS (7)
  1. ADVATE [Suspect]
     Active Substance: ANTIHEMOPHILIC FACTOR, HUMAN RECOMBINANT
     Indication: FACTOR VIII DEFICIENCY
     Dosage: 750 INTERNATIONAL UNIT, 1/WEEK
     Route: 042
     Dates: start: 20190417
  2. ADVATE [Suspect]
     Active Substance: ANTIHEMOPHILIC FACTOR, HUMAN RECOMBINANT
     Dosage: 500 INTERNATIONAL UNIT, 1/WEEK
     Route: 065
     Dates: start: 201905
  3. ADVATE [Suspect]
     Active Substance: ANTIHEMOPHILIC FACTOR, HUMAN RECOMBINANT
     Indication: FACTOR VIII DEFICIENCY
     Dosage: 750 INTERNATIONAL UNIT, 1/WEEK
     Route: 042
     Dates: start: 20190417
  4. ADVATE [Suspect]
     Active Substance: ANTIHEMOPHILIC FACTOR, HUMAN RECOMBINANT
     Dosage: 500 INTERNATIONAL UNIT, 1/WEEK
     Route: 065
     Dates: start: 201905
  5. ADVATE [Suspect]
     Active Substance: ANTIHEMOPHILIC FACTOR, HUMAN RECOMBINANT
     Indication: FACTOR VIII DEFICIENCY
     Dosage: 750 INTERNATIONAL UNIT, 1/WEEK
     Route: 042
     Dates: start: 20190417
  6. TRANEXAMIC ACID. [Concomitant]
     Active Substance: TRANEXAMIC ACID
     Dosage: UNK
     Route: 065
  7. ADVATE [Suspect]
     Active Substance: ANTIHEMOPHILIC FACTOR, HUMAN RECOMBINANT
     Dosage: 500 INTERNATIONAL UNIT, 1/WEEK
     Route: 065
     Dates: start: 201905

REACTIONS (6)
  - Microcytosis [Recovered/Resolved]
  - Spontaneous haemorrhage [Recovered/Resolved]
  - Coagulation factor VIII level decreased [Unknown]
  - Iron deficiency anaemia [Recovered/Resolved]
  - Haemarthrosis [Unknown]
  - Bursitis [Unknown]

NARRATIVE: CASE EVENT DATE: 20210304
